FAERS Safety Report 21826800 (Version 3)
Quarter: 2023Q1

REPORT INFORMATION
  Report Type: Spontaneous
  Country: US (occurrence: US)
  Receive Date: 20230106
  Receipt Date: 20230221
  Transmission Date: 20230418
  Serious: No
  Sender: FDA-Public Use
  Company Number: US-UNITED THERAPEUTICS-UNT-2022-032602

PATIENT
  Age: 53 Year
  Sex: Female
  Weight: 70.295 kg

DRUGS (3)
  1. REMODULIN [Suspect]
     Active Substance: TREPROSTINIL
     Indication: Pulmonary arterial hypertension
     Dosage: 0.036 ?G/KG, CONTINUING  (SELF FILLED WITH 2.9 ML PER CASSETTE; PUMP RATE OF 33 MCL PER HOUR)
     Route: 058
     Dates: start: 202212
  2. REMODULIN [Suspect]
     Active Substance: TREPROSTINIL
     Dosage: 0.048 ?G/KG, (SELF-FILLED WITH 3 ML PER CASSETTE; PUMP RATE OF 44 MCL PER HOUR), CONTINUING
     Route: 058
  3. REMODULIN [Suspect]
     Active Substance: TREPROSTINIL
     Dosage: UNK, CONTINUING
     Route: 058
     Dates: start: 20221209

REACTIONS (1)
  - Infusion site infection [Recovered/Resolved]

NARRATIVE: CASE EVENT DATE: 20221201
